FAERS Safety Report 4316012-2 (Version None)
Quarter: 2004Q1

REPORT INFORMATION
  Report Type: 
  Country: None (occurrence: None)
  Receive Date: 20040311
  Receipt Date: 20040226
  Transmission Date: 20041129
  Serious: Yes (Hospitalization)
  Sender: FDA-Public Use
  Company Number: 2003182711BE

PATIENT
  Age: 72 Year
  Sex: Male

DRUGS (4)
  1. MEDROL [Suspect]
     Indication: IMMUNOSUPPRESSION
     Dates: start: 20021006
  2. SIMULECT [Suspect]
     Indication: IMMUNOSUPPRESSION
     Dosage: 20 MG, QD, IV
     Route: 042
     Dates: start: 20021004, end: 20021009
  3. BMS224818 [Suspect]
     Indication: IMMUNOSUPPRESSION
     Dosage: 80 ML, QD, IV
     Route: 042
     Dates: start: 20021004
  4. CELLCEPT [Suspect]
     Indication: IMMUNOSUPPRESSION
     Dates: start: 20021004

REACTIONS (1)
  - KIDNEY TRANSPLANT REJECTION [None]
